FAERS Safety Report 11778977 (Version 2)
Quarter: 2016Q1

REPORT INFORMATION
  Report Type: Spontaneous
  Country: US (occurrence: US)
  Receive Date: 20151125
  Receipt Date: 20160112
  Transmission Date: 20160525
  Serious: Yes (Hospitalization, Other)
  Sender: FDA-Public Use
  Company Number: US-PFIZER INC-2015403383

PATIENT
  Age: 54 Year
  Sex: Male
  Weight: 73 kg

DRUGS (2)
  1. RAPAMUNE [Suspect]
     Active Substance: SIROLIMUS
     Dosage: 1 MG, UNK
  2. RAPAMUNE [Suspect]
     Active Substance: SIROLIMUS
     Indication: PROPHYLAXIS AGAINST TRANSPLANT REJECTION
     Dosage: 2 MG, 1X/DAY
     Dates: start: 200011

REACTIONS (11)
  - Weight decreased [Recovering/Resolving]
  - Cough [Not Recovered/Not Resolved]
  - Urethral cancer [Unknown]
  - Condition aggravated [Not Recovered/Not Resolved]
  - Pneumonia [Recovered/Resolved]
  - Tremor [Not Recovered/Not Resolved]
  - Rash [Recovered/Resolved]
  - Empyema [Recovered/Resolved]
  - Bladder cancer [Unknown]
  - Diarrhoea [Recovering/Resolving]
  - Hyperkeratosis [Not Recovered/Not Resolved]

NARRATIVE: CASE EVENT DATE: 200011
